FAERS Safety Report 5054135-3 (Version None)
Quarter: 2006Q3

REPORT INFORMATION
  Report Type: 
  Country: None (occurrence: None)
  Receive Date: 20060713
  Receipt Date: 20060628
  Transmission Date: 20061208
  Serious: Yes (Other)
  Sender: FDA-Public Use
  Company Number: 29482

PATIENT
  Age: 70 Year
  Sex: Male

DRUGS (3)
  1. ALDARA [Suspect]
     Indication: ACTINIC KERATOSIS
     Dosage: 1 DF, 3 TIMES WEEKLY (1 DOSAGE FORMS, 3 IN 1 WEEK (S)) TOPICAL
     Route: 061
     Dates: start: 20060601
  2. INSULIN [Concomitant]
  3. GLUCOPHAGE [Concomitant]

REACTIONS (1)
  - DIABETES MELLITUS INSULIN-DEPENDENT [None]
